FAERS Safety Report 8814310 (Version 1)
Quarter: 2012Q4

REPORT INFORMATION
  Report Type: Spontaneous
  Country: US (occurrence: None)
  Receive Date: 20120925
  Receipt Date: 20120925
  Transmission Date: 20130627
  Serious: Yes (Hospitalization)
  Sender: FDA-Public Use
  Company Number: UTC-023325

PATIENT
  Age: 63 Year
  Sex: Female

DRUGS (2)
  1. REMODULIN (2.5 MILLIGRAM/MILLILITERS, INJECTION FOR INFUSION) (TREPROSTINIL SODIUM) [Suspect]
     Indication: PRIMARY PULMONARY HYPERTENSION
     Dosage: 24 nangm
     Route: 041
     Dates: start: 20100225
  2. LETAIRIS [Concomitant]

REACTIONS (2)
  - Loss of consciousness [None]
  - Device dislocation [None]
